FAERS Safety Report 9032090 (Version 2)
Quarter: 2013Q4

REPORT INFORMATION
  Report Type: Spontaneous
  Country: US (occurrence: US)
  Receive Date: 20130122
  Receipt Date: 20131024
  Transmission Date: 20140711
  Serious: Yes (Other)
  Sender: FDA-Public Use
  Company Number: PHEH2013US001642

PATIENT
  Sex: Male

DRUGS (2)
  1. VOLTAREN [Suspect]
     Indication: PAIN
     Dosage: 10 MG, BID
     Route: 048
  2. MOBIC [Suspect]
     Indication: PAIN
     Dosage: 7.5 MG, BID
     Route: 048
     Dates: end: 201210

REACTIONS (5)
  - Arthritis [Unknown]
  - Barrett^s oesophagus [Unknown]
  - Gastrooesophageal reflux disease [Unknown]
  - Dyspepsia [Unknown]
  - Epigastric discomfort [Unknown]
